FAERS Safety Report 23532364 (Version 1)
Quarter: 2024Q1

REPORT INFORMATION
  Report Type: Report from Study
  Country: US (occurrence: US)
  Receive Date: 20240216
  Receipt Date: 20240216
  Transmission Date: 20240410
  Serious: Yes (Hospitalization, Other)
  Sender: FDA-Public Use
  Company Number: US-BAYER-2024A023594

PATIENT
  Age: 51 Year
  Sex: Female

DRUGS (2)
  1. STIVARGA [Suspect]
     Active Substance: REGORAFENIB
     Indication: Colon cancer
     Dosage: 120 MG, QD ( 21 DAYS OF 28 DAY CYCLE )
     Dates: start: 20240109, end: 20240201
  2. STIVARGA [Suspect]
     Active Substance: REGORAFENIB
     Indication: Colon cancer
     Dosage: 80 MG, QD
     Dates: start: 202402

REACTIONS (5)
  - Gait inability [Recovering/Resolving]
  - Sepsis [Recovering/Resolving]
  - Palmar-plantar erythrodysaesthesia syndrome [Recovering/Resolving]
  - Blister [Recovered/Resolved]
  - Off label use [None]

NARRATIVE: CASE EVENT DATE: 20240109
